FAERS Safety Report 25299513 (Version 1)
Quarter: 2025Q2

REPORT INFORMATION
  Report Type: Spontaneous
  Country: FR (occurrence: FR)
  Receive Date: 20250512
  Receipt Date: 20250512
  Transmission Date: 20250717
  Serious: Yes (Hospitalization, Other)
  Sender: UNICHEM
  Company Number: FR-UNICHEM LABORATORIES LIMITED-UNI-2025-FR-002177

PATIENT

DRUGS (3)
  1. AMLODIPINE [Suspect]
     Active Substance: AMLODIPINE BESYLATE
     Indication: Product used for unknown indication
     Route: 065
  2. CANDESARTAN [Suspect]
     Active Substance: CANDESARTAN
     Indication: Product used for unknown indication
     Route: 065
  3. CELIPROLOL [Suspect]
     Active Substance: CELIPROLOL
     Indication: Product used for unknown indication
     Route: 065

REACTIONS (7)
  - Suicide attempt [Unknown]
  - Toxicity to various agents [Unknown]
  - Atrioventricular block complete [Unknown]
  - Vasoplegia syndrome [Unknown]
  - Nodal rhythm [Unknown]
  - Hypotension [Unknown]
  - Bradycardia [Unknown]
